FAERS Safety Report 15937672 (Version 3)
Quarter: 2019Q4

REPORT INFORMATION
  Report Type: Spontaneous
  Country: US (occurrence: US)
  Receive Date: 20190208
  Receipt Date: 20191209
  Transmission Date: 20200122
  Serious: Yes (Hospitalization, Other)
  Sender: FDA-Public Use
  Company Number: US-ASTRAZENECA-2018SF64738

PATIENT
  Age: 712 Month
  Sex: Female

DRUGS (18)
  1. NEXIUM [Suspect]
     Active Substance: ESOMEPRAZOLE MAGNESIUM
     Indication: GASTROOESOPHAGEAL REFLUX DISEASE
     Route: 048
     Dates: start: 2009, end: 2015
  2. LANTUS [Concomitant]
     Active Substance: INSULIN GLARGINE
  3. DIOVAN [Concomitant]
     Active Substance: VALSARTAN
  4. LISINOPRIL. [Concomitant]
     Active Substance: LISINOPRIL
  5. NEXIUM [Suspect]
     Active Substance: ESOMEPRAZOLE MAGNESIUM
     Indication: GASTROOESOPHAGEAL REFLUX DISEASE
     Route: 048
     Dates: start: 20130718
  6. ZOLPIDEM [Concomitant]
     Active Substance: ZOLPIDEM TARTRATE
  7. GABAPENTIN. [Concomitant]
     Active Substance: GABAPENTIN
  8. NEXIUM [Suspect]
     Active Substance: ESOMEPRAZOLE MAGNESIUM
     Indication: GASTROOESOPHAGEAL REFLUX DISEASE
     Route: 048
     Dates: start: 20090101, end: 20161231
  9. METOPROLOL SUCCINATE. [Concomitant]
     Active Substance: METOPROLOL SUCCINATE
  10. NEXIUM [Suspect]
     Active Substance: ESOMEPRAZOLE MAGNESIUM
     Indication: GASTROOESOPHAGEAL REFLUX DISEASE
     Route: 048
     Dates: start: 20150504
  11. ATORVASTATIN [Concomitant]
     Active Substance: ATORVASTATIN
  12. NOVOLOG [Concomitant]
     Active Substance: INSULIN ASPART
  13. NEXIUM [Suspect]
     Active Substance: ESOMEPRAZOLE MAGNESIUM
     Indication: GASTROOESOPHAGEAL REFLUX DISEASE
     Route: 048
     Dates: start: 20090101, end: 20161231
  14. HYDROCODONE BITARTRATE/ACETAMINOPHEN [Concomitant]
     Active Substance: ACETAMINOPHEN\HYDROCODONE BITARTRATE
  15. CLOPIDOGREL [Concomitant]
     Active Substance: CLOPIDOGREL BISULFATE
  16. ONDANSETRON [Concomitant]
     Active Substance: ONDANSETRON
  17. SUCRALFATE. [Concomitant]
     Active Substance: SUCRALFATE
  18. FUROSEMIDE. [Concomitant]
     Active Substance: FUROSEMIDE

REACTIONS (4)
  - Renal failure [Unknown]
  - Chronic kidney disease [Not Recovered/Not Resolved]
  - Renal injury [Unknown]
  - Rebound acid hypersecretion [Unknown]

NARRATIVE: CASE EVENT DATE: 201504
